FAERS Safety Report 20617640 (Version 2)
Quarter: 2022Q2

REPORT INFORMATION
  Report Type: Report from Study
  Country: CA (occurrence: CA)
  Receive Date: 20220321
  Receipt Date: 20220410
  Transmission Date: 20220721
  Serious: Yes (Hospitalization, Other)
  Sender: FDA-Public Use
  Company Number: CA-BRISTOL-MYERS SQUIBB COMPANY-BMS-2022-037347

PATIENT
  Age: 55 Year
  Sex: Female
  Weight: 70.00 kg

DRUGS (3)
  1. ABATACEPT [Suspect]
     Active Substance: ABATACEPT
     Indication: Rheumatoid arthritis
     Dosage: 750 MILLIGRAM, Q4WK
     Route: 042
     Dates: start: 20140722
  2. SIMPONI [Concomitant]
     Active Substance: GOLIMUMAB
     Indication: Product used for unknown indication
     Route: 065
     Dates: start: 201301
  3. METHOTREXATE [Concomitant]
     Active Substance: METHOTREXATE
     Indication: Product used for unknown indication
     Route: 065
     Dates: start: 200001

REACTIONS (4)
  - Intestinal obstruction [Unknown]
  - Arthropathy [Unknown]
  - Weight decreased [Recovered/Resolved]
  - Blood pressure diastolic decreased [Recovered/Resolved]

NARRATIVE: CASE EVENT DATE: 20220101
